FAERS Safety Report 4649449-2 (Version None)
Quarter: 2005Q2

REPORT INFORMATION
  Report Type: 
  Country: None (occurrence: None)
  Receive Date: 20050427
  Receipt Date: 20050411
  Transmission Date: 20051028
  Serious: Yes (Hospitalization)
  Sender: FDA-Public Use
  Company Number: A02200501012

PATIENT
  Age: 81 Year
  Sex: Male

DRUGS (6)
  1. XATRAL - (ALFUZOSIN) - TABLET PR - 5 MG / TABLET PR - 5 MG [Suspect]
     Dosage: 5 MG BID / 10 MG ONCE ORAL
     Route: 048
     Dates: end: 20040801
  2. XATRAL - (ALFUZOSIN) - TABLET PR - 5 MG / TABLET PR - 5 MG [Suspect]
     Dosage: 5 MG BID / 10 MG ONCE ORAL
     Route: 048
     Dates: start: 20040801
  3. ZESTRIL [Concomitant]
  4. KARDEGIC (ACETYLSALICYLATE LYSINE) [Concomitant]
  5. APROVEL (IRBESARTAN) [Concomitant]
  6. DEROXAT (PAROXETINE HYDROCHLORIDE) [Concomitant]

REACTIONS (3)
  - DIZZINESS [None]
  - HYPERHIDROSIS [None]
  - MALAISE [None]
